FAERS Safety Report 19602077 (Version 1)
Quarter: 2021Q3

REPORT INFORMATION
  Report Type: Spontaneous
  Country: CN (occurrence: CN)
  Receive Date: 20210723
  Receipt Date: 20210723
  Transmission Date: 20211014
  Serious: Yes (Death, Other)
  Sender: FDA-Public Use
  Company Number: CN-SUN PHARMACEUTICAL INDUSTRIES LTD-2021R1-305077

PATIENT
  Age: 47 Year
  Sex: Male

DRUGS (2)
  1. DECITABINE. [Suspect]
     Active Substance: DECITABINE
     Indication: LUNG ADENOCARCINOMA STAGE IV
     Dosage: 10 MILLIGRAM, DAILY (1?5 DAYS)
     Route: 065
  2. CAMRELIZUMAB [Suspect]
     Active Substance: CAMRELIZUMAB
     Indication: LUNG ADENOCARCINOMA STAGE IV
     Dosage: 200 MILLIGRAM, QD ON DAY 6
     Route: 065
     Dates: start: 201709

REACTIONS (3)
  - Anaemia [Unknown]
  - Disease progression [Unknown]
  - Nausea [Unknown]
